FAERS Safety Report 10333726 (Version 1)
Quarter: 2014Q3

REPORT INFORMATION
  Report Type: Spontaneous
  Country: US (occurrence: US)
  Receive Date: 20140723
  Receipt Date: 20140723
  Transmission Date: 20150326
  Serious: Yes (Hospitalization, Other)
  Sender: FDA-Public Use
  Company Number: US-009507513-1407USA009614

PATIENT
  Age: 62 Year
  Sex: Female

DRUGS (1)
  1. TEMODAR [Suspect]
     Active Substance: TEMOZOLOMIDE
     Indication: BRAIN NEOPLASM MALIGNANT
     Dosage: TAKE ONE 5MG CAPSULE EVERY DAY ON DAYS 1 THROUGH 42 (STRENGTH ALSO REPORTED AS 5/100MG)
     Route: 048
     Dates: start: 20140625

REACTIONS (2)
  - Vomiting [Unknown]
  - Convulsion [Unknown]

NARRATIVE: CASE EVENT DATE: 20140718
